FAERS Safety Report 14765259 (Version 1)
Quarter: 2018Q2

REPORT INFORMATION
  Report Type: Spontaneous
  Country: US (occurrence: US)
  Receive Date: 20180416
  Receipt Date: 20180416
  Transmission Date: 20180711
  Serious: No
  Sender: FDA-Public Use
  Company Number: US-TEVA-2018-US-880481

PATIENT
  Sex: Female

DRUGS (3)
  1. MUPIROCIN. [Suspect]
     Active Substance: MUPIROCIN
     Indication: NASAL DRYNESS
  2. MUPIROCIN. [Suspect]
     Active Substance: MUPIROCIN
     Indication: SINUSITIS
     Route: 065
     Dates: start: 20180405
  3. MUPIROCIN. [Suspect]
     Active Substance: MUPIROCIN
     Indication: NASAL DISCOMFORT

REACTIONS (4)
  - Pruritus [Unknown]
  - Incorrect route of drug administration [Unknown]
  - Product use in unapproved indication [Unknown]
  - Paraesthesia [Unknown]

NARRATIVE: CASE EVENT DATE: 20180405
